FAERS Safety Report 8089893-7 (Version None)
Quarter: 2012Q1

REPORT INFORMATION
  Report Type: 
  Country: None (occurrence: None)
  Receive Date: 20120129
  Receipt Date: 20111018
  Transmission Date: 20120608
  Serious: No
  Sender: FDA-Public Use
  Company Number: US-ABBOTT-11P-163-0866322-00

PATIENT
  Sex: Female

DRUGS (4)
  1. ASACOL [Concomitant]
     Indication: INFLAMMATION
  2. NORVASC [Concomitant]
     Indication: HYPERTENSION
  3. HUMIRA [Suspect]
     Indication: COLITIS ULCERATIVE
     Dosage: DAY ONE
     Route: 058
     Dates: start: 20111014
  4. PREDNISONE TAB [Concomitant]
     Indication: INFLAMMATION

REACTIONS (1)
  - CONTUSION [None]
